FAERS Safety Report 4449983-4 (Version None)
Quarter: 2004Q3

REPORT INFORMATION
  Report Type: 
  Country: None (occurrence: None)
  Receive Date: 20040910
  Receipt Date: 20040526
  Transmission Date: 20050211
  Serious: Yes (Hospitalization)
  Sender: FDA-Public Use
  Company Number: S04-USA-03012-01

PATIENT
  Age: 30 Year
  Sex: Female

DRUGS (4)
  1. LEXAPRO [Suspect]
     Indication: DEPRESSION
     Dosage: 10 MG QD PO
     Route: 048
     Dates: start: 20040218, end: 20040329
  2. SEROQUEL [Suspect]
     Indication: DEPRESSION
     Dosage: 100 MG BID PO
     Route: 048
     Dates: start: 20040218, end: 20040329
  3. NEURONTIN [Concomitant]
  4. LITHIUM [Concomitant]

REACTIONS (4)
  - ALANINE AMINOTRANSFERASE INCREASED [None]
  - ASPARTATE AMINOTRANSFERASE INCREASED [None]
  - GAMMA-GLUTAMYLTRANSFERASE INCREASED [None]
  - RHABDOMYOLYSIS [None]
